FAERS Safety Report 4841465-0 (Version None)
Quarter: 2005Q4

REPORT INFORMATION
  Report Type: 
  Country: None (occurrence: None)
  Receive Date: 20051130
  Receipt Date: 20051122
  Transmission Date: 20060501
  Serious: Yes (Hospitalization)
  Sender: FDA-Public Use
  Company Number: JP-BOEHRINGER INGELHEIM PHARMACEUTICALS, INC.-2005-BP-20665NB

PATIENT
  Age: 67 Year
  Sex: Female

DRUGS (5)
  1. MICARDIS [Suspect]
     Indication: HYPERTENSION
     Route: 048
     Dates: start: 20050423, end: 20051003
  2. MYONAL [Suspect]
     Indication: SPINAL OSTEOARTHRITIS
     Route: 048
     Dates: start: 20040510, end: 20051003
  3. LORCAM [Suspect]
     Indication: SPINAL OSTEOARTHRITIS
     Route: 048
     Dates: start: 20040510, end: 20051003
  4. MUCOSTA [Suspect]
     Indication: GASTRITIS
     Route: 048
     Dates: start: 20040510, end: 20051003
  5. OPALMON [Suspect]
     Indication: ISCHAEMIA
     Route: 048
     Dates: start: 20040510, end: 20051003

REACTIONS (2)
  - BLISTER [None]
  - RASH [None]
